FAERS Safety Report 18784538 (Version 1)
Quarter: 2021Q1

REPORT INFORMATION
  Report Type: Spontaneous
  Country: CN (occurrence: CN)
  Receive Date: 20210125
  Receipt Date: 20210125
  Transmission Date: 20210419
  Serious: Yes (Other)
  Sender: FDA-Public Use
  Company Number: CN-SAOL THERAPEUTICS-2021SAO00015

PATIENT

DRUGS (4)
  1. HEPATITIS B IMMUNE GLOBULIN [Suspect]
     Active Substance: HUMAN HEPATITIS B VIRUS IMMUNE GLOBULIN
     Dosage: INJECTED AT 12 WEEKS
     Route: 065
  2. HEPATITIS B IMMUNE GLOBULIN [Suspect]
     Active Substance: HUMAN HEPATITIS B VIRUS IMMUNE GLOBULIN
     Indication: PROPHYLAXIS
     Dosage: INJECTED AT 2 WEEKS
     Route: 065
  3. HEPATITIS B IMMUNE GLOBULIN [Suspect]
     Active Substance: HUMAN HEPATITIS B VIRUS IMMUNE GLOBULIN
     Dosage: INJECTED AT 4 WEEKS
     Route: 065
  4. HEPATITIS B VACCINE [Suspect]
     Active Substance: HEPATITIS B VIRUS VACCINE
     Indication: PROPHYLAXIS
     Dosage: INJECTED DAY OF BIRTH
     Route: 065

REACTIONS (2)
  - Drug ineffective [Recovered/Resolved]
  - Hepatitis B antigen positive [Recovered/Resolved]
